FAERS Safety Report 6279177-1 (Version None)
Quarter: 2009Q3

REPORT INFORMATION
  Report Type: 
  Country: None (occurrence: None)
  Receive Date: 20090723
  Receipt Date: 20090713
  Transmission Date: 20100115
  Serious: Yes (Hospitalization)
  Sender: FDA-Public Use
  Company Number: DE-ROCHE-644128

PATIENT
  Age: 16 Year
  Sex: Male

DRUGS (4)
  1. ROACCUTAN [Suspect]
     Indication: ACNE
     Dosage: OTHER INDICATION: GRANULOMATOUS CHEILITIS
     Route: 065
     Dates: start: 20041001
  2. ROACCUTAN [Suspect]
     Dosage: THERAPY TEMPORARILY INTERRUPTED FOR 10 DAYS IN APRIL 2005
     Route: 065
  3. ROACCUTAN [Suspect]
     Route: 065
  4. ROACCUTAN [Suspect]
     Route: 065
     Dates: end: 20050801

REACTIONS (3)
  - ALOPECIA [None]
  - OBSESSIVE-COMPULSIVE DISORDER [None]
  - SCHIZOPHRENIA [None]
